FAERS Safety Report 24293758 (Version 1)
Quarter: 2024Q3

REPORT INFORMATION
  Report Type: Spontaneous
  Country: US (occurrence: None)
  Receive Date: 20240906
  Receipt Date: 20240906
  Transmission Date: 20241017
  Serious: Yes (Hospitalization)
  Sender: Public
  Company Number: None

PATIENT
  Age: 60 Year
  Sex: Male
  Weight: 82 kg

DRUGS (1)
  1. TARLATAMAB [Suspect]
     Active Substance: TARLATAMAB
     Indication: Small cell lung cancer
     Dosage: 10 MG EVERY 2 WEEKS INTRAVENOUS BOLUS
     Route: 040
     Dates: start: 20240821

REACTIONS (5)
  - Oedema peripheral [None]
  - Acute respiratory failure [None]
  - Pulmonary oedema [None]
  - Superior vena cava syndrome [None]
  - Pleural effusion [None]

NARRATIVE: CASE EVENT DATE: 20240828
